FAERS Safety Report 17426052 (Version 1)
Quarter: 2020Q1

REPORT INFORMATION
  Report Type: Spontaneous
  Country: CO (occurrence: CO)
  Receive Date: 20200217
  Receipt Date: 20200217
  Transmission Date: 20200409
  Serious: Yes (Hospitalization, Other)
  Sender: FDA-Public Use
  Company Number: CO-PFIZER INC-2020066458

PATIENT
  Age: 75 Year
  Sex: Female

DRUGS (1)
  1. INLYTA [Suspect]
     Active Substance: AXITINIB
     Dosage: 5 MG, UNK 2018 (REPORTED AS APPROXIMATELY TWO YEARS BEFORE THE TIME OF REPORTING)
     Route: 048
     Dates: start: 2018

REACTIONS (5)
  - Impaired healing [Unknown]
  - Diarrhoea [Unknown]
  - Intestinal ulcer [Unknown]
  - Varicose ulceration [Unknown]
  - Abdominal pain upper [Unknown]

NARRATIVE: CASE EVENT DATE: 201908
